FAERS Safety Report 17678014 (Version 1)
Quarter: 2020Q2

REPORT INFORMATION
  Report Type: Spontaneous
  Country: US (occurrence: US)
  Receive Date: 20200416
  Receipt Date: 20200416
  Transmission Date: 20200714
  Serious: Yes (Death, Hospitalization, Other)
  Sender: FDA-Public Use
  Company Number: US-SUN PHARMACEUTICAL INDUSTRIES LTD-2020R1-244182

PATIENT
  Age: 26 Year
  Sex: Female

DRUGS (2)
  1. CEFTRIAXONE. [Suspect]
     Active Substance: CEFTRIAXONE
     Indication: PNEUMONIA
     Dosage: UNK
     Route: 065
  2. AZITHROMYCIN ANHYDROUS. [Suspect]
     Active Substance: AZITHROMYCIN ANHYDROUS
     Indication: PNEUMONIA
     Dosage: UNK
     Route: 065

REACTIONS (11)
  - Hypoxia [Unknown]
  - Hypotension [Unknown]
  - Postpartum haemorrhage [Not Recovered/Not Resolved]
  - Live birth [Unknown]
  - Tachypnoea [Unknown]
  - Dyspnoea [Unknown]
  - Exposure during pregnancy [Unknown]
  - Signet-ring cell carcinoma [Fatal]
  - Uterine atony [Unknown]
  - Multiple organ dysfunction syndrome [Fatal]
  - Pre-eclampsia [Unknown]
